FAERS Safety Report 18526077 (Version 1)
Quarter: 2020Q4

REPORT INFORMATION
  Report Type: Spontaneous
  Country: US (occurrence: US)
  Receive Date: 20201120
  Receipt Date: 20201120
  Transmission Date: 20210114
  Serious: Yes (Hospitalization, Other)
  Sender: FDA-Public Use
  Company Number: US-HIKMA PHARMACEUTICALS USA INC.-US-H14001-20-05164

PATIENT
  Age: 67 Year
  Sex: Female

DRUGS (2)
  1. LITHIUM. [Suspect]
     Active Substance: LITHIUM
     Indication: BIPOLAR DISORDER
     Dosage: UNKNOWN
     Route: 065
  2. HALOPERIDOL. [Concomitant]
     Active Substance: HALOPERIDOL
     Indication: BIPOLAR DISORDER
     Dosage: UNKNOWN
     Route: 065

REACTIONS (3)
  - Encephalopathy [Recovering/Resolving]
  - Toxicity to various agents [Unknown]
  - Status epilepticus [Unknown]
